FAERS Safety Report 9288615 (Version 1)
Quarter: 2013Q2

REPORT INFORMATION
  Report Type: Spontaneous
  Country: US (occurrence: None)
  Receive Date: 20130513
  Receipt Date: 20130513
  Transmission Date: 20140414
  Serious: Yes (Hospitalization)
  Sender: FDA-Public Use
  Company Number: None

PATIENT
  Age: 70 Year
  Sex: Female
  Weight: 85 kg

DRUGS (7)
  1. PACLITAXEL (TAXOL) [Suspect]
     Dates: start: 20130417
  2. AMLODIPINE BESYLATE [Concomitant]
  3. HYZAAR [Concomitant]
  4. MARINOL [Concomitant]
  5. SIMVASTATIN [Concomitant]
  6. SYNTHROID [Concomitant]
  7. ZOMETA [Concomitant]

REACTIONS (3)
  - Dyspnoea [None]
  - Muscular weakness [None]
  - Non-cardiac chest pain [None]
